FAERS Safety Report 23918718 (Version 1)
Quarter: 2024Q2

REPORT INFORMATION
  Report Type: Spontaneous
  Country: IT (occurrence: None)
  Receive Date: 20240530
  Receipt Date: 20240530
  Transmission Date: 20240716
  Serious: Yes (Hospitalization, Other)
  Sender: FDA-Public Use
  Company Number: IT-ROCHE-3549706

PATIENT
  Age: 36 Year
  Sex: Female

DRUGS (1)
  1. VABYSMO [Suspect]
     Active Substance: FARICIMAB\FARICIMAB-SVOA
     Indication: Diabetic retinal oedema
     Dosage: IN LEFT EYE.?IN RIGHT EYE-08/APR/2024
     Route: 050
     Dates: start: 20240225

REACTIONS (4)
  - Iridocyclitis [Unknown]
  - Vitritis [Unknown]
  - Hyphaema [Recovered/Resolved]
  - Vitreous haemorrhage [Recovering/Resolving]

NARRATIVE: CASE EVENT DATE: 20240415
